FAERS Safety Report 9824760 (Version 2)
Quarter: 2014Q1

REPORT INFORMATION
  Report Type: Spontaneous
  Country: US (occurrence: US)
  Receive Date: 20140115
  Receipt Date: 20140115
  Transmission Date: 20141002
  Serious: Yes (Hospitalization)
  Sender: FDA-Public Use
  Company Number: US-B.I. PHARMACEUTICALS,INC./RIDGEFIELD-2013-BI-22481BP

PATIENT
  Sex: Female
  Weight: 77.11 kg

DRUGS (12)
  1. PRADAXA [Suspect]
     Dosage: 300 MG
     Dates: start: 20110530, end: 20120203
  2. ASPIRIN [Concomitant]
     Dosage: 81 MG
     Dates: end: 20120203
  3. AMIODARONE [Concomitant]
     Dosage: 400 MG
  4. METFORMIN [Concomitant]
     Dosage: 500 MG
  5. LASIX [Concomitant]
     Dosage: 40 MG
  6. CITALOPRAM [Concomitant]
     Dosage: 20 MG
  7. TOPROL XL [Concomitant]
     Dosage: 25 MG
  8. LISINOPRIL [Concomitant]
     Dosage: 2.5 MG
  9. SIMVASTATIN [Concomitant]
     Dosage: 20 MG
  10. KCL [Concomitant]
     Dosage: 20 MEQ
  11. OMEPRAZOLE [Concomitant]
     Dosage: 20 MG
  12. MAALOX [Concomitant]
     Dosage: 60 ML

REACTIONS (3)
  - Gastrointestinal haemorrhage [Unknown]
  - Haemorrhagic anaemia [Unknown]
  - Vaginal haemorrhage [Unknown]
